FAERS Safety Report 5543084-X (Version None)
Quarter: 2007Q4

REPORT INFORMATION
  Report Type: 
  Country: None (occurrence: None)
  Receive Date: 20071123
  Receipt Date: 20070221
  Transmission Date: 20080405
  Serious: Yes (Hospitalization)
  Sender: FDA-Public Use
  Company Number: US-JNJFOC-20070200190

PATIENT
  Age: 82 Year
  Sex: Male

DRUGS (10)
  1. LEVAQUIN [Suspect]
     Indication: URINARY TRACT INFECTION
     Dosage: 500 MG, 1 IN 1 DAY, ORAL
     Route: 048
     Dates: start: 20061224, end: 20061231
  2. LEVAQUIN [Suspect]
     Indication: URINARY TRACT INFECTION
     Dosage: INTRAVENOUS
     Route: 042
  3. LEVOTHYROXINE (LEVOTHYROXINE) TABLET [Concomitant]
  4. SIMVASTATIN (JNJ16269110 COMPARATOR) TABLET [Concomitant]
  5. FLOMAX [Concomitant]
  6. LISINOPRIL [Concomitant]
  7. CLOPIDOGREL (CLOPIDOGREL) TABLETS [Concomitant]
  8. METOPROLOL TARTRATE [Concomitant]
  9. ISONIAZID (TMC207 COMPARATOR) TABLET [Concomitant]
  10. COUMADIN [Concomitant]

REACTIONS (6)
  - ASTHENIA [None]
  - CHEST PAIN [None]
  - HEART RATE INCREASED [None]
  - MUSCULOSKELETAL PAIN [None]
  - NIGHT SWEATS [None]
  - PAIN [None]
